FAERS Safety Report 9507440 (Version 1)
Quarter: 2013Q3

REPORT INFORMATION
  Report Type: Spontaneous
  Country: US (occurrence: None)
  Receive Date: 20130904
  Receipt Date: 20130904
  Transmission Date: 20140515
  Serious: Yes (Other)
  Sender: FDA-Public Use
  Company Number: USA/USA/13/0034296

PATIENT
  Age: 33 Year
  Sex: Male

DRUGS (5)
  1. OLANZAPINE [Suspect]
     Indication: MANIA
  2. OLANZAPINE [Suspect]
     Indication: PSYCHOTIC DISORDER
  3. LAMOTRIGINE [Suspect]
     Indication: MANIA
  4. LAMOTRIGINE [Suspect]
     Indication: PSYCHOTIC DISORDER
  5. CLONAZEPAM [Suspect]
     Indication: PRODUCT USED FOR UNKNOWN INDICATION
     Route: 048

REACTIONS (7)
  - Weight increased [None]
  - Hypertriglyceridaemia [None]
  - Hyperglycaemia [None]
  - Blood cholesterol increased [None]
  - Aspartate aminotransferase increased [None]
  - Alanine aminotransferase increased [None]
  - Non-high-density lipoprotein cholesterol increased [None]
